FAERS Safety Report 23343596 (Version 1)
Quarter: 2023Q4

REPORT INFORMATION
  Report Type: Spontaneous
  Country: US (occurrence: US)
  Receive Date: 20231227
  Receipt Date: 20231227
  Transmission Date: 20240109
  Serious: No
  Sender: FDA-Public Use
  Company Number: US-PFIZER INC-PV202300205154

PATIENT
  Age: 96 Year

DRUGS (2)
  1. PALBOCICLIB [Suspect]
     Active Substance: PALBOCICLIB
     Indication: Breast cancer female
     Dosage: DAILY. TAKE WITH OR WITHOUT FOOD ON DAYS 1-14 OF 21 DAY CYCLE
     Route: 048
  2. PALBOCICLIB [Suspect]
     Active Substance: PALBOCICLIB
     Indication: Hormone receptor positive breast cancer

REACTIONS (2)
  - Osteoporosis [Unknown]
  - Off label use [Unknown]
